FAERS Safety Report 21969070 (Version 1)
Quarter: 2023Q1

REPORT INFORMATION
  Report Type: Spontaneous
  Country: US (occurrence: JP)
  Receive Date: 20230208
  Receipt Date: 20230208
  Transmission Date: 20230417
  Serious: No
  Sender: FDA-Public Use
  Company Number: JP-ABBVIE-4289261

PATIENT
  Age: 48 Year
  Sex: Male

DRUGS (6)
  1. NORVIR [Suspect]
     Active Substance: RITONAVIR
     Indication: HIV infection
     Route: 048
     Dates: start: 20130422, end: 20130909
  2. DARUNAVIR ETHANOLATE [Suspect]
     Active Substance: DARUNAVIR ETHANOLATE
     Indication: HIV infection
     Dosage: 800 MG,
     Route: 065
     Dates: start: 20130422, end: 20130909
  3. COBICISTAT\ELVITEGRAVIR\EMTRICITABINE\TENOFOVIR [Suspect]
     Active Substance: COBICISTAT\ELVITEGRAVIR\EMTRICITABINE\TENOFOVIR
     Indication: HIV infection
     Route: 048
     Dates: start: 20130910, end: 20140727
  4. TIVICAY [Suspect]
     Active Substance: DOLUTEGRAVIR SODIUM
     Indication: HIV infection
     Dosage: 50 MG,
     Route: 065
     Dates: start: 20140728, end: 20190819
  5. EMTRICITABINE\TENOFOVIR DISOPROXIL FUMARATE [Suspect]
     Active Substance: EMTRICITABINE\TENOFOVIR DISOPROXIL FUMARATE
     Indication: HIV infection
     Route: 048
     Dates: start: 20140728, end: 20170205
  6. EMTRICITABINE\TENOFOVIR DISOPROXIL FUMARATE [Suspect]
     Active Substance: EMTRICITABINE\TENOFOVIR DISOPROXIL FUMARATE
     Indication: HIV infection
     Route: 048
     Dates: start: 20130422, end: 20130909

REACTIONS (1)
  - Blood alkaline phosphatase increased [Not Recovered/Not Resolved]

NARRATIVE: CASE EVENT DATE: 20130909
